FAERS Safety Report 7200070-1 (Version None)
Quarter: 2010Q4

REPORT INFORMATION
  Report Type: 
  Country: None (occurrence: None)
  Receive Date: 20101215
  Receipt Date: 20101201
  Transmission Date: 20110411
  Serious: Yes (Hospitalization)
  Sender: FDA-Public Use
  Company Number: 2010P1002997

PATIENT
  Age: 74 Year
  Sex: Male
  Weight: 72.5755 kg

DRUGS (1)
  1. FENTANYL-25 [Suspect]
     Indication: BACK PAIN
     Dosage: 25 MCG/HR; Q72H; TDER
     Route: 062
     Dates: start: 20100915, end: 20101023

REACTIONS (4)
  - AORTIC ANEURYSM RUPTURE [None]
  - INCORRECT DRUG ADMINISTRATION DURATION [None]
  - INTESTINAL HAEMORRHAGE [None]
  - LETHARGY [None]
